FAERS Safety Report 6035417-5 (Version None)
Quarter: 2009Q1

REPORT INFORMATION
  Report Type: 
  Country: None (occurrence: None)
  Receive Date: 20090113
  Receipt Date: 20090107
  Transmission Date: 20090719
  Serious: Yes (Hospitalization)
  Sender: FDA-Public Use
  Company Number: US-JNJFOC-20090101449

PATIENT
  Sex: Female
  Weight: 46.27 kg

DRUGS (5)
  1. DURAGESIC-100 [Suspect]
     Indication: BACK PAIN
     Route: 062
  2. INTERFERON [Concomitant]
     Route: 058
  3. RIBEVIRIN [Concomitant]
  4. COZAAR [Concomitant]
     Indication: BLOOD PRESSURE
  5. XANAX [Concomitant]
     Indication: ANXIETY

REACTIONS (3)
  - ANAEMIA [None]
  - THROMBOSIS [None]
  - VISUAL IMPAIRMENT [None]
